FAERS Safety Report 5678097-0 (Version None)
Quarter: 2008Q1

REPORT INFORMATION
  Report Type: 
  Country: None (occurrence: None)
  Receive Date: 20080319
  Receipt Date: 20080215
  Transmission Date: 20080703
  Serious: Yes (Death)
  Sender: FDA-Public Use
  Company Number: 20063346

PATIENT
  Age: 87 Year
  Sex: Male

DRUGS (1)
  1. LIORESAL [Suspect]
     Indication: MUSCLE SPASTICITY
     Dosage: MCG, DAILY, INTRATHECAL
     Route: 037
     Dates: start: 20060815, end: 20061204

REACTIONS (11)
  - ABDOMINAL PAIN [None]
  - ABSCESS [None]
  - ALTERED STATE OF CONSCIOUSNESS [None]
  - BETA HAEMOLYTIC STREPTOCOCCAL INFECTION [None]
  - CEREBRAL INFARCTION [None]
  - CULTURE POSITIVE [None]
  - IMPLANT SITE PAIN [None]
  - INFECTION [None]
  - PROCEDURAL PAIN [None]
  - SEPTIC SHOCK [None]
  - SPEECH DISORDER [None]
